FAERS Safety Report 7175587-9 (Version None)
Quarter: 2010Q4

REPORT INFORMATION
  Report Type: 
  Country: None (occurrence: None)
  Receive Date: 20101220
  Receipt Date: 20100323
  Transmission Date: 20110411
  Serious: No
  Sender: FDA-Public Use
  Company Number: US-AMGEN-TCS401546

PATIENT

DRUGS (2)
  1. ENBREL [Suspect]
     Indication: ANKYLOSING SPONDYLITIS
     Dosage: 50 MG, QWK
     Route: 058
     Dates: start: 20100302
  2. ENBREL [Suspect]
     Indication: PSORIASIS

REACTIONS (7)
  - ACNE [None]
  - ACNE PUSTULAR [None]
  - ERYTHEMA [None]
  - HAIR COLOUR CHANGES [None]
  - HAIR GROWTH ABNORMAL [None]
  - HYSTERECTOMY [None]
  - SCAB [None]
